FAERS Safety Report 21790684 (Version 1)
Quarter: 2022Q4

REPORT INFORMATION
  Report Type: Report from Study
  Country: US (occurrence: US)
  Receive Date: 20221228
  Receipt Date: 20221228
  Transmission Date: 20230112
  Serious: Yes (Other)
  Sender: FDA-Public Use
  Company Number: US-JAZZ-2022-US-000887

PATIENT
  Age: 50 Year
  Sex: Female

DRUGS (17)
  1. XYREM [Suspect]
     Active Substance: SODIUM OXYBATE
     Indication: Narcolepsy
     Dosage: 2.25 GRAM, BID AT BEDTIME
     Route: 048
     Dates: start: 201105, end: 201108
  2. XYREM [Suspect]
     Active Substance: SODIUM OXYBATE
     Indication: Cataplexy
     Dosage: DOSE ADJUSTMENT
     Route: 048
     Dates: start: 201108, end: 201708
  3. XYREM [Suspect]
     Active Substance: SODIUM OXYBATE
     Indication: Somnolence
     Dosage: 4.5 GRAM, BID AT BEDTIME
     Route: 048
     Dates: start: 201708
  4. CELECOXIB [Concomitant]
     Active Substance: CELECOXIB
     Dosage: UNK
     Dates: start: 20210727
  5. ASPIRIN [Concomitant]
     Active Substance: ASPIRIN
  6. B COMPLETE [VITAMIN B COMPLEX] [Concomitant]
  7. BIOTIN [Concomitant]
     Active Substance: BIOTIN
  8. LORATADINE [Concomitant]
     Active Substance: LORATADINE
  9. DICYCLOMINE HYDROCHLORIDE [Concomitant]
     Active Substance: DICYCLOMINE HYDROCHLORIDE
  10. GABAPENTIN [Concomitant]
     Active Substance: GABAPENTIN
  11. HAIR SKIN NAILS [Concomitant]
  12. NEXIUM I.V. [Concomitant]
     Active Substance: ESOMEPRAZOLE SODIUM
  13. OXYCODONE [Concomitant]
     Active Substance: OXYCODONE
  14. PLAQUENIL [Concomitant]
     Active Substance: HYDROXYCHLOROQUINE SULFATE
  15. POTASSIUM [Concomitant]
     Active Substance: POTASSIUM
  16. VITAMIN B12 [Concomitant]
     Active Substance: CYANOCOBALAMIN
  17. VITAMIN D3 [Concomitant]
     Active Substance: CHOLECALCIFEROL

REACTIONS (4)
  - Cerebrovascular accident [Unknown]
  - Breast cancer [Unknown]
  - Throat irritation [Unknown]
  - Product administration interrupted [Unknown]

NARRATIVE: CASE EVENT DATE: 20160701
